FAERS Safety Report 8365462-6 (Version None)
Quarter: 2012Q2

REPORT INFORMATION
  Report Type: 
  Country: None (occurrence: None)
  Receive Date: 20120516
  Receipt Date: 20120314
  Transmission Date: 20120825
  Serious: Yes (Death, Hospitalization, Other)
  Sender: FDA-Public Use
  Company Number: PHHY2012US040631

PATIENT
  Age: 53 Year
  Sex: Male
  Weight: 84 kg

DRUGS (2)
  1. CARISOPRODOL [Suspect]
  2. ACETAMINOPHEN AND HYDROCODONE BITARTRATE [Suspect]

REACTIONS (10)
  - PERIORBITAL OEDEMA [None]
  - HYPOTENSION [None]
  - MENTAL STATUS CHANGES [None]
  - OVERDOSE [None]
  - RASH [None]
  - MIOSIS [None]
  - HYPOKINESIA [None]
  - MYOCARDIAL INFARCTION [None]
  - SUICIDE ATTEMPT [None]
  - STUPOR [None]
